FAERS Safety Report 17620618 (Version 1)
Quarter: 2020Q2

REPORT INFORMATION
  Report Type: Report from Study
  Country: BR (occurrence: BR)
  Receive Date: 20200403
  Receipt Date: 20200403
  Transmission Date: 20200713
  Serious: Yes (Hospitalization, Other)
  Sender: FDA-Public Use
  Company Number: BR-BIOGEN-2019BI00763531

PATIENT
  Age: 39 Year
  Sex: Female

DRUGS (6)
  1. COPAXONE [Suspect]
     Active Substance: GLATIRAMER ACETATE
     Indication: PRODUCT USED FOR UNKNOWN INDICATION
     Route: 065
  2. AVONEX PEN [Suspect]
     Active Substance: INTERFERON BETA-1A
     Indication: MULTIPLE SCLEROSIS
     Route: 030
     Dates: start: 2004, end: 2006
  3. AVONEX PEN [Suspect]
     Active Substance: INTERFERON BETA-1A
     Route: 030
     Dates: start: 201805
  4. TYLENOL [Suspect]
     Active Substance: ACETAMINOPHEN
     Indication: PRODUCT USED FOR UNKNOWN INDICATION
     Route: 050
  5. AVONEX PEN [Suspect]
     Active Substance: INTERFERON BETA-1A
     Route: 030
     Dates: start: 201805
  6. AVONEX PEN [Suspect]
     Active Substance: INTERFERON BETA-1A

REACTIONS (11)
  - Sluggishness [Not Recovered/Not Resolved]
  - Hypersensitivity [Unknown]
  - Anaphylactic shock [Unknown]
  - Contusion [Not Recovered/Not Resolved]
  - Head discomfort [Not Recovered/Not Resolved]
  - Wrong technique in product usage process [Unknown]
  - Asthenia [Not Recovered/Not Resolved]
  - Product administration error [Unknown]
  - Headache [Not Recovered/Not Resolved]
  - Product dose omission [Unknown]
  - Intentional product misuse [Unknown]

NARRATIVE: CASE EVENT DATE: 20190711
